FAERS Safety Report 8860212 (Version 2)
Quarter: 2012Q4

REPORT INFORMATION
  Report Type: 
  Country: PT (occurrence: PT)
  Receive Date: 20121025
  Receipt Date: 20121102
  Transmission Date: 20130627
  Serious: Yes (Hospitalization, Other)
  Sender: FDA-Public Use
  Company Number: PT-ABBOTT-12P-130-0997015-00

PATIENT
  Age: 43 Year
  Sex: Female

DRUGS (4)
  1. BRUFEN [Suspect]
     Indication: MYALGIA
     Dosage: Single dose, film coated
     Route: 048
     Dates: start: 20121004, end: 20121004
  2. SULFAMETHOXAZOLE AND TRIMETHOPRIM DS [Suspect]
     Indication: ANTIBIOTIC PROPHYLAXIS
     Dosage: 800mg+160mg
     Route: 048
     Dates: start: 20121002, end: 20121005
  3. FLUCONAZOL [Concomitant]
     Indication: ANTIFUNGAL PROPHYLAXIS
     Route: 048
     Dates: start: 20121002
  4. ACYCLOVIR [Concomitant]
     Indication: ANTIVIRAL PROPHYLAXIS
     Route: 048
     Dates: start: 20121002

REACTIONS (1)
  - Rash erythematous [Not Recovered/Not Resolved]
